FAERS Safety Report 9809041 (Version 2)
Quarter: 2014Q1

REPORT INFORMATION
  Report Type: Report from Study
  Country: BR (occurrence: BR)
  Receive Date: 20140110
  Receipt Date: 20140312
  Transmission Date: 20141002
  Serious: Yes (Other)
  Sender: FDA-Public Use
  Company Number: PHHY2014BR002736

PATIENT
  Sex: Male
  Weight: 70 kg

DRUGS (6)
  1. EXELON PATCH [Suspect]
     Indication: MEMORY IMPAIRMENT
     Dosage: 4.6 MG, DAILY
     Route: 062
  2. PROLOPA [Concomitant]
     Dosage: UNK UKN, UNK
  3. ZOLOFT [Concomitant]
     Dosage: UNK UKN, UNK
  4. MUVINOR [Concomitant]
     Dosage: UNK UKN, UNK
  5. FORTEN                             /07409701/ [Concomitant]
     Dosage: UNK UKN, UNK
  6. STABIL//PRAMIPEXOLE DIHYDROCHLORIDE [Concomitant]
     Indication: GASTROINTESTINAL DISORDER
     Dosage: UNK UKN, UNK

REACTIONS (5)
  - Labyrinthitis [Not Recovered/Not Resolved]
  - Dizziness [Not Recovered/Not Resolved]
  - Application site hypersensitivity [Recovered/Resolved]
  - Application site erythema [Recovered/Resolved]
  - Application site pruritus [Recovered/Resolved]
